FAERS Safety Report 14992595 (Version 1)
Quarter: 2018Q2

REPORT INFORMATION
  Report Type: Report from Study
  Country: ES (occurrence: ES)
  Receive Date: 20180609
  Receipt Date: 20180609
  Transmission Date: 20180711
  Serious: Yes (Life-Threatening, Hospitalization, Other)
  Sender: FDA-Public Use
  Company Number: ES-TEVA-2018-ES-903967

PATIENT
  Age: 75 Year
  Sex: Male

DRUGS (3)
  1. BICALUTAMIDA (2713A) [Suspect]
     Active Substance: BICALUTAMIDE
     Indication: HORMONE-DEPENDENT PROSTATE CANCER
     Dosage: 50 MILLIGRAM DAILY;
     Route: 048
     Dates: start: 20170413, end: 20170506
  2. RIVOTRIL 0.5 MG COMPRESSED, 60 TABLETS [Concomitant]
     Dosage: .5 MILLIGRAM DAILY;
     Route: 048
     Dates: start: 201105, end: 20170506
  3. AMITRIPTILINA HIDROCLORURO (395CH) [Interacting]
     Active Substance: AMITRIPTYLINE HYDROCHLORIDE
     Dosage: 75 MILLIGRAM DAILY;
     Route: 048
     Dates: start: 201002, end: 20170506

REACTIONS (3)
  - Electrocardiogram QT prolonged [Recovered/Resolved with Sequelae]
  - Torsade de pointes [Recovered/Resolved with Sequelae]
  - Drug interaction [Unknown]

NARRATIVE: CASE EVENT DATE: 20170506
